FAERS Safety Report 4930396-3 (Version None)
Quarter: 2006Q1

REPORT INFORMATION
  Report Type: 
  Country: None (occurrence: None)
  Receive Date: 20060302
  Receipt Date: 20060214
  Transmission Date: 20060701
  Serious: Yes (Other)
  Sender: FDA-Public Use
  Company Number: FR-ABBOTT-06P-056-0324872-00

PATIENT
  Age: 62 Year
  Sex: Female

DRUGS (10)
  1. LEVOTHYROX [Suspect]
     Indication: HYPOTHYROIDISM
  2. SEROPLEX FILM-COATED TABLETS [Interacting]
     Indication: DEPRESSION
     Route: 048
     Dates: start: 20051122
  3. SEROPLEX FILM-COATED TABLETS [Interacting]
     Route: 048
     Dates: start: 20051101, end: 20051121
  4. PEGINTERFERON ALFA-2A [Interacting]
     Indication: HEPATITIS C
     Dates: start: 20050920
  5. RIBAVIRIN [Interacting]
     Indication: HEPATITIS C
     Dates: start: 20050920
  6. ACETAMINOPHEN [Concomitant]
     Indication: DRUG USE FOR UNKNOWN INDICATION
  7. ZOLPIDEM [Concomitant]
     Indication: DRUG USE FOR UNKNOWN INDICATION
  8. CLOBAZAM [Concomitant]
     Indication: DRUG USE FOR UNKNOWN INDICATION
     Route: 048
  9. DOMPERIDONE [Concomitant]
     Indication: DRUG USE FOR UNKNOWN INDICATION
  10. DIOSMIN [Concomitant]
     Indication: DRUG USE FOR UNKNOWN INDICATION

REACTIONS (3)
  - ATRIAL FIBRILLATION [None]
  - DRUG INTERACTION [None]
  - SUPRAVENTRICULAR EXTRASYSTOLES [None]
